FAERS Safety Report 6189515-6 (Version None)
Quarter: 2009Q2

REPORT INFORMATION
  Report Type: 
  Country: None (occurrence: None)
  Receive Date: 20090512
  Receipt Date: 20090512
  Transmission Date: 20091009
  Serious: Yes (Life-Threatening)
  Sender: FDA-Public Use
  Company Number: None

PATIENT
  Age: 61 Year
  Sex: Male
  Weight: 72.5755 kg

DRUGS (1)
  1. SOLARAZE [Suspect]
     Indication: PRECANCEROUS SKIN LESION
     Dosage: APPLY TO FACE 2X DAILY TOP
     Route: 061
     Dates: start: 20090213, end: 20090410

REACTIONS (11)
  - ARACHNOIDITIS [None]
  - ASTHENIA [None]
  - DECREASED ACTIVITY [None]
  - FEELING ABNORMAL [None]
  - INCORRECT DOSE ADMINISTERED [None]
  - MEMORY IMPAIRMENT [None]
  - PERFORMANCE STATUS DECREASED [None]
  - PRODUCT QUALITY ISSUE [None]
  - ROAD TRAFFIC ACCIDENT [None]
  - SOMNOLENCE [None]
  - TREATMENT NONCOMPLIANCE [None]
